FAERS Safety Report 16975014 (Version 1)
Quarter: 2019Q4

REPORT INFORMATION
  Report Type: Spontaneous
  Country: US (occurrence: US)
  Receive Date: 20191030
  Receipt Date: 20191030
  Transmission Date: 20200122
  Serious: No
  Sender: FDA-Public Use
  Company Number: US-ACTELION-A-US2019-197493

PATIENT
  Sex: Female
  Weight: 117.91 kg

DRUGS (2)
  1. UPTRAVI [Suspect]
     Active Substance: SELEXIPAG
     Indication: PULMONARY HYPERTENSION
     Dosage: 200 MCG, BID
     Route: 048
     Dates: start: 20191017
  2. ADEMPAS [Concomitant]
     Active Substance: RIOCIGUAT

REACTIONS (3)
  - Headache [Unknown]
  - Pruritus [Unknown]
  - Petechiae [Unknown]
